FAERS Safety Report 20416933 (Version 2)
Quarter: 2022Q1

REPORT INFORMATION
  Report Type: Report from Study
  Country: US (occurrence: US)
  Receive Date: 20220202
  Receipt Date: 20220215
  Transmission Date: 20220423
  Serious: No
  Sender: FDA-Public Use
  Company Number: US-NOVARTISTESTPH-NVSC2022US022456

PATIENT
  Sex: Male

DRUGS (1)
  1. ENTRESTO [Suspect]
     Active Substance: SACUBITRIL\VALSARTAN
     Indication: Product used for unknown indication
     Dosage: 1 DOSAGE FORM, BID(24/26MG - 2 TABS BID
     Route: 048
     Dates: start: 2021

REACTIONS (4)
  - Visual impairment [Unknown]
  - Throat clearing [Unknown]
  - Cough [Unknown]
  - Rhinorrhoea [Unknown]
